FAERS Safety Report 7631305-9 (Version None)
Quarter: 2011Q3

REPORT INFORMATION
  Report Type: 
  Country: None (occurrence: None)
  Receive Date: 20110715
  Receipt Date: 20110708
  Transmission Date: 20111222
  Serious: Yes (Hospitalization, Disabling)
  Sender: FDA-Public Use
  Company Number: ACO_25039_2011

PATIENT
  Age: 31 Year
  Sex: Female

DRUGS (2)
  1. AMPYRA [Suspect]
     Indication: GAIT DISTURBANCE
     Dosage: 10 MG, Q 12 HRS
  2. BETASERON [Concomitant]

REACTIONS (3)
  - UNEVALUABLE EVENT [None]
  - MULTIPLE SCLEROSIS RELAPSE [None]
  - ABASIA [None]
